FAERS Safety Report 21783321 (Version 2)
Quarter: 2022Q4

REPORT INFORMATION
  Report Type: Spontaneous
  Country: CN (occurrence: CN)
  Receive Date: 20221227
  Receipt Date: 20221228
  Transmission Date: 20230112
  Serious: No
  Sender: FDA-Public Use
  Company Number: CN-PFIZER INC-202201388093

PATIENT
  Age: 50 Year
  Sex: Female

DRUGS (2)
  1. PAXLOVID [Suspect]
     Active Substance: NIRMATRELVIR\RITONAVIR
     Indication: COVID-19 treatment
     Dosage: ONCE EVERY 12 HOURS
     Route: 048
     Dates: start: 20221220, end: 20221221
  2. PAXLOVID [Suspect]
     Active Substance: NIRMATRELVIR\RITONAVIR
     Dosage: UNK
     Dates: start: 20221222

REACTIONS (4)
  - Dizziness [Not Recovered/Not Resolved]
  - Headache [Not Recovered/Not Resolved]
  - Incorrect product administration duration [Unknown]
  - Off label use [Unknown]

NARRATIVE: CASE EVENT DATE: 20221201
